FAERS Safety Report 14879577 (Version 3)
Quarter: 2019Q3

REPORT INFORMATION
  Report Type: Report from Study
  Country: JP (occurrence: JP)
  Receive Date: 20180511
  Receipt Date: 20190708
  Transmission Date: 20191004
  Serious: Yes (Hospitalization)
  Sender: FDA-Public Use
  Company Number: JP-EISAI MEDICAL RESEARCH-EC-2018-039670

PATIENT
  Age: 17 Year
  Sex: Male
  Weight: 47 kg

DRUGS (18)
  1. FYCOMPA [Suspect]
     Active Substance: PERAMPANEL
     Route: 048
     Dates: start: 20170621, end: 20171126
  2. PHENYTOIN. [Suspect]
     Active Substance: PHENYTOIN
     Route: 048
     Dates: start: 20170510, end: 20171130
  3. PHENYTOIN. [Suspect]
     Active Substance: PHENYTOIN
     Route: 048
     Dates: start: 20171201, end: 20171201
  4. OLOPATADINE HYDROCHLORIDE. [Concomitant]
     Active Substance: OLOPATADINE HYDROCHLORIDE
  5. FYCOMPA [Suspect]
     Active Substance: PERAMPANEL
     Route: 048
     Dates: start: 20171127, end: 20190305
  6. PHENYTOIN. [Suspect]
     Active Substance: PHENYTOIN
     Route: 048
     Dates: start: 20171205
  7. FYCOMPA [Suspect]
     Active Substance: PERAMPANEL
     Route: 048
     Dates: start: 20170405, end: 20170620
  8. PHENYTOIN. [Suspect]
     Active Substance: PHENYTOIN
     Route: 048
     Dates: start: 20171202, end: 20171204
  9. LEVETIRACETAM. [Concomitant]
     Active Substance: LEVETIRACETAM
  10. FYCOMPA [Suspect]
     Active Substance: PERAMPANEL
     Route: 048
     Dates: start: 20170302, end: 20170404
  11. FAMOTIDINE. [Concomitant]
     Active Substance: FAMOTIDINE
  12. METHYLPREDNISOLONE. [Concomitant]
     Active Substance: METHYLPREDNISOLONE
  13. FYCOMPA [Suspect]
     Active Substance: PERAMPANEL
     Indication: PARTIAL SEIZURES
     Route: 048
     Dates: start: 20170217, end: 20170301
  14. PHENYTOIN. [Suspect]
     Active Substance: PHENYTOIN
     Indication: PARTIAL SEIZURES
     Route: 048
     Dates: end: 20170509
  15. ONON [Concomitant]
     Active Substance: PRANLUKAST
  16. METHOXYPHENAMINE HYDROCHLORIDE [Concomitant]
     Active Substance: METHOXYPHENAMINE HYDROCHLORIDE
  17. FYCOMPA [Suspect]
     Active Substance: PERAMPANEL
     Route: 048
     Dates: start: 20190306
  18. NASONEX [Concomitant]
     Active Substance: MOMETASONE FUROATE

REACTIONS (3)
  - Status epilepticus [Recovered/Resolved]
  - Seizure [Recovered/Resolved]
  - Pneumonia [Recovered/Resolved]

NARRATIVE: CASE EVENT DATE: 20171127
